FAERS Safety Report 7137591-6 (Version None)
Quarter: 2010Q4

REPORT INFORMATION
  Report Type: 
  Country: None (occurrence: None)
  Receive Date: 20101206
  Receipt Date: 20101122
  Transmission Date: 20110411
  Serious: Yes (Hospitalization)
  Sender: FDA-Public Use
  Company Number: DE-RANBAXY-2010RR-37991

PATIENT
  Age: 53 Year
  Sex: Female
  Weight: 55 kg

DRUGS (5)
  1. PARACETAMOL [Suspect]
     Indication: PYREXIA
     Dosage: 1000 MG, UNK
     Route: 048
     Dates: start: 20100616, end: 20100616
  2. PARACETAMOL [Suspect]
     Dosage: 1000 MG, UNK
     Route: 048
     Dates: start: 20100630, end: 20100630
  3. METHOTREXATE SODIUM [Suspect]
     Indication: RHEUMATOID ARTHRITIS
     Dosage: 15 MG, QD
     Route: 048
     Dates: start: 20000101, end: 20100705
  4. MABTHERA [Suspect]
     Indication: RHEUMATOID ARTHRITIS
     Dosage: 1000 MG, BID
     Route: 042
     Dates: start: 20090101, end: 20100630
  5. PREDNISOLONE [Concomitant]
     Indication: RHEUMATOID ARTHRITIS
     Dosage: 20 MG, QD
     Route: 048
     Dates: start: 19970101

REACTIONS (1)
  - LIVER DISORDER [None]
